FAERS Safety Report 4293084-5 (Version None)
Quarter: 2004Q1

REPORT INFORMATION
  Report Type: 
  Country: None (occurrence: None)
  Receive Date: 20040212
  Receipt Date: 20020926
  Transmission Date: 20041129
  Serious: No
  Sender: FDA-Public Use
  Company Number: US-GLAXOSMITHKLINE-A0381881A

PATIENT
  Age: 53 Year
  Sex: Female
  Weight: 72.7 kg

DRUGS (5)
  1. PAXIL [Suspect]
     Indication: ANXIETY
     Route: 048
     Dates: start: 20000101, end: 20020901
  2. PREDNISONE [Concomitant]
     Indication: MYASTHENIA GRAVIS
     Dosage: 20MG ALTERNATE DAYS
     Dates: start: 19910101
  3. CELEBREX [Concomitant]
     Indication: ARTHRITIS
     Route: 048
     Dates: start: 20020101
  4. PRINZIDE [Concomitant]
     Indication: HYPERTENSION
     Route: 048
     Dates: start: 19820101
  5. AMBIEN [Concomitant]
     Route: 048
     Dates: start: 20010101

REACTIONS (4)
  - DISABILITY [None]
  - DIZZINESS [None]
  - HEADACHE [None]
  - TREMOR [None]
